FAERS Safety Report 8443256-0 (Version None)
Quarter: 2012Q2

REPORT INFORMATION
  Report Type: 
  Country: None (occurrence: None)
  Receive Date: 20120617
  Receipt Date: 20090917
  Transmission Date: 20120825
  Serious: Yes (Death)
  Sender: FDA-Public Use
  Company Number: PHHY2009IR070495

PATIENT
  Age: 32 Year
  Sex: Male

DRUGS (5)
  1. CYCLOSPORINE [Suspect]
     Indication: LUNG TRANSPLANT
     Dosage: 5 MG/KG
     Route: 048
  2. METHYLPREDNISOLONE [Concomitant]
     Indication: LUNG TRANSPLANT
     Dosage: 500 MG
  3. PREDNISOLONE [Concomitant]
     Indication: LUNG TRANSPLANT
  4. MYCOPHENOLATE MOFETIL [Concomitant]
     Indication: LUNG TRANSPLANT
  5. GANCICLOVIR [Concomitant]

REACTIONS (2)
  - PULMONARY OEDEMA [None]
  - HAEMODYNAMIC INSTABILITY [None]
